FAERS Safety Report 9300134 (Version 2)
Quarter: 2013Q2

REPORT INFORMATION
  Report Type: Spontaneous
  Country: IT (occurrence: IT)
  Receive Date: 20130521
  Receipt Date: 20130529
  Transmission Date: 20140414
  Serious: Yes (Other)
  Sender: FDA-Public Use
  Company Number: IT-TEVA-404738ISR

PATIENT
  Age: 55 Year
  Sex: Male

DRUGS (2)
  1. CISPLATINO TEVA [Suspect]
     Indication: LUNG ADENOCARCINOMA
     Dosage: 139.5 MG CYCLICAL
     Route: 042
     Dates: start: 20121213, end: 20130404
  2. ALIMTA [Concomitant]
     Dosage: 930 MILLIGRAM DAILY;
     Route: 042
     Dates: start: 20121213, end: 20130404

REACTIONS (5)
  - Feeling hot [Recovered/Resolved]
  - Pruritus [Recovered/Resolved]
  - Oedema [Recovered/Resolved]
  - Lip oedema [Recovered/Resolved]
  - Flushing [Recovered/Resolved]
